FAERS Safety Report 8482900-9 (Version None)
Quarter: 2012Q3

REPORT INFORMATION
  Report Type: 
  Country: None (occurrence: None)
  Receive Date: 20120702
  Receipt Date: 20120621
  Transmission Date: 20120928
  Serious: No
  Sender: FDA-Public Use
  Company Number: US-ACTELION-A-NJ2012-66784

PATIENT

DRUGS (9)
  1. HYDROCODONE [Concomitant]
  2. TRACLEER [Suspect]
     Indication: PULMONARY ARTERIAL HYPERTENSION
     Dosage: UNK
     Route: 048
  3. COUMADIN [Concomitant]
  4. NEXIUM [Concomitant]
  5. LISINOPRIL [Concomitant]
  6. MEGACE [Concomitant]
  7. COREG [Concomitant]
  8. ACETAMINOPHEN [Concomitant]
  9. FOLBEE PLUS [Concomitant]

REACTIONS (1)
  - FATIGUE [None]
